FAERS Safety Report 21921171 (Version 1)
Quarter: 2023Q1

REPORT INFORMATION
  Report Type: Spontaneous
  Country: DE (occurrence: DE)
  Receive Date: 20230127
  Receipt Date: 20230127
  Transmission Date: 20230418
  Serious: Yes (Other)
  Sender: FDA-Public Use
  Company Number: DE-002147023-NVSC2023DE018442

PATIENT
  Age: 81 Year
  Sex: Male
  Weight: 51 kg

DRUGS (10)
  1. CLINDAMYCIN [Suspect]
     Active Substance: CLINDAMYCIN
     Indication: Product used for unknown indication
     Dosage: UNK
     Route: 065
  2. PANTOPRAZOLE [Concomitant]
     Active Substance: PANTOPRAZOLE
     Indication: Gastritis erosive
     Dosage: 20 MG
     Route: 048
  3. METOPROLOL [Concomitant]
     Active Substance: METOPROLOL
     Indication: Hypertension
     Dosage: 47.5 MG, BID
     Route: 048
  4. LISINOPRIL [Concomitant]
     Active Substance: LISINOPRIL
     Indication: Hypertension
     Dosage: 10 MG
     Route: 048
  5. AMLODIPINE [Concomitant]
     Active Substance: AMLODIPINE BESYLATE
     Indication: Hypertension
     Dosage: 5 MG
     Route: 048
  6. MIDAZOLAM [Concomitant]
     Active Substance: MIDAZOLAM
     Indication: Seizure
     Dosage: UNK
     Route: 065
     Dates: start: 2022
  7. NALOXONE [Concomitant]
     Active Substance: NALOXONE
     Indication: Coma
     Dosage: UNK
     Route: 065
     Dates: start: 2022
  8. FLUMAZENIL [Concomitant]
     Active Substance: FLUMAZENIL
     Indication: Coma
     Dosage: UNK
     Route: 065
     Dates: start: 2022
  9. CEFTRIAXONE [Concomitant]
     Active Substance: CEFTRIAXONE
     Indication: Pleocytosis
     Dosage: UNK
     Route: 065
     Dates: start: 2022
  10. ACYCLOVIR [Concomitant]
     Active Substance: ACYCLOVIR
     Indication: Pleocytosis
     Dosage: UNK
     Route: 065
     Dates: start: 2022

REACTIONS (2)
  - Renal impairment [Unknown]
  - Hyperkalaemia [Unknown]

NARRATIVE: CASE EVENT DATE: 20220101
